FAERS Safety Report 8590143-3 (Version None)
Quarter: 2012Q3

REPORT INFORMATION
  Report Type: 
  Country: None (occurrence: None)
  Receive Date: 20120813
  Receipt Date: 19881121
  Transmission Date: 20120928
  Serious: Yes (Hospitalization)
  Sender: FDA-Public Use
  Company Number: US-ROCHE-1099799

PATIENT
  Sex: Male

DRUGS (2)
  1. ACTIVASE [Suspect]
     Indication: ACUTE MYOCARDIAL INFARCTION
     Route: 042
     Dates: start: 19880813
  2. ACTIVASE [Suspect]
     Dosage: 50 MG PER HOUR.
     Route: 041
     Dates: start: 19880813

REACTIONS (1)
  - CHEST PAIN [None]
